FAERS Safety Report 17915829 (Version 1)
Quarter: 2020Q2

REPORT INFORMATION
  Report Type: Spontaneous
  Country: US (occurrence: US)
  Receive Date: 20200618
  Receipt Date: 20200618
  Transmission Date: 20200714
  Serious: Yes (Disabling)
  Sender: FDA-Public Use
  Company Number: None

PATIENT
  Age: 43 Year
  Sex: Female
  Weight: 90 kg

DRUGS (3)
  1. TYLENOL [Concomitant]
     Active Substance: ACETAMINOPHEN
  2. MONTELUKAST (GENERIC FOR SINGULAR) [Suspect]
     Active Substance: MONTELUKAST SODIUM
     Indication: MULTIPLE ALLERGIES
     Dosage: ?          QUANTITY:1 TABLET(S);?
     Route: 048
     Dates: start: 20191209, end: 20200616
  3. ONE A DAY WOMAN [Concomitant]

REACTIONS (13)
  - Aggression [None]
  - Hostility [None]
  - Irritability [None]
  - Depressed mood [None]
  - Anxiety [None]
  - Feeling abnormal [None]
  - Agitation [None]
  - Amnesia [None]
  - Headache [None]
  - Memory impairment [None]
  - Fatigue [None]
  - Depression [None]
  - Mental disorder [None]

NARRATIVE: CASE EVENT DATE: 20200528
